FAERS Safety Report 9460720 (Version 8)
Quarter: 2015Q2

REPORT INFORMATION
  Report Type: Spontaneous
  Country: US (occurrence: US)
  Receive Date: 20130815
  Receipt Date: 20150610
  Transmission Date: 20150821
  Serious: Yes (Hospitalization, Other)
  Sender: FDA-Public Use
  Company Number: US-GLAXOSMITHKLINE-A0864093A

PATIENT
  Sex: Female

DRUGS (8)
  1. REQUIP [Suspect]
     Active Substance: ROPINIROLE HYDROCHLORIDE
     Indication: RESTLESS LEGS SYNDROME
     Dosage: 0.5MG, UNKNOWN DOSING
     Route: 065
     Dates: start: 20091214
  2. REQUIP [Suspect]
     Active Substance: ROPINIROLE HYDROCHLORIDE
     Indication: DYSKINESIA
  3. VENTOLIN HFA [Suspect]
     Active Substance: ALBUTEROL SULFATE
     Indication: PRODUCT USED FOR UNKNOWN INDICATION
     Dosage: 90 MCG
     Route: 065
     Dates: start: 20140327
  4. CARBIDOPA/LEVODOPA [Concomitant]
     Active Substance: CARBIDOPA\LEVODOPA
  5. METHOTREXATE [Suspect]
     Active Substance: METHOTREXATE
     Route: 065
  6. REMICADE [Concomitant]
     Active Substance: INFLIXIMAB
  7. ADVAIR DISKUS [Suspect]
     Active Substance: FLUTICASONE PROPIONATE\SALMETEROL XINAFOATE
     Indication: ASTHMA
     Dosage: UNK, U
     Route: 065
     Dates: start: 20100114
  8. ADVAIR DISKUS [Suspect]
     Active Substance: FLUTICASONE PROPIONATE\SALMETEROL XINAFOATE
     Indication: CHRONIC OBSTRUCTIVE PULMONARY DISEASE

REACTIONS (27)
  - Limb operation [Unknown]
  - Dyskinesia [Unknown]
  - Rheumatoid arthritis [Unknown]
  - Pelvic fracture [Unknown]
  - Upper respiratory tract infection [Unknown]
  - Restless legs syndrome [Not Recovered/Not Resolved]
  - Catheter placement [Unknown]
  - Hip surgery [Unknown]
  - Bladder operation [Unknown]
  - Impaired driving ability [Unknown]
  - Thyroid disorder [Unknown]
  - Hip arthroplasty [Unknown]
  - Blood iron decreased [Unknown]
  - Lung infection [Unknown]
  - Incontinence [Unknown]
  - Rehabilitation therapy [Unknown]
  - Memory impairment [Not Recovered/Not Resolved]
  - Lower limb fracture [Unknown]
  - Parkinson^s disease [Not Recovered/Not Resolved]
  - Femur fracture [Unknown]
  - Rash [Unknown]
  - Pain in extremity [Unknown]
  - Feeling abnormal [Unknown]
  - Fall [Unknown]
  - Haemoglobin decreased [Unknown]
  - Physiotherapy [Unknown]
  - Cystitis [Unknown]

NARRATIVE: CASE EVENT DATE: 2013
